FAERS Safety Report 7997342 (Version 3)
Quarter: 2013Q3

REPORT INFORMATION
  Report Type: Spontaneous
  Country: US (occurrence: US)
  Receive Date: 20110620
  Receipt Date: 20130723
  Transmission Date: 20140515
  Serious: No
  Sender: FDA-Public Use
  Company Number: US-JNJFOC-20110510417

PATIENT
  Age: 32 Year
  Sex: Female
  Weight: 97.52 kg

DRUGS (3)
  1. STELARA [Suspect]
     Indication: PSORIASIS
     Route: 058
     Dates: start: 20110225
  2. STELARA [Suspect]
     Indication: PSORIASIS
     Route: 058
     Dates: start: 201103
  3. CELEXA [Concomitant]
     Indication: ANXIETY
     Route: 048
     Dates: start: 2007

REACTIONS (3)
  - Dysphagia [Not Recovered/Not Resolved]
  - Tonsillar neoplasm [Not Recovered/Not Resolved]
  - Lymphadenopathy [Not Recovered/Not Resolved]
